FAERS Safety Report 13953775 (Version 1)
Quarter: 2017Q3

REPORT INFORMATION
  Report Type: Spontaneous
  Country: US (occurrence: US)
  Receive Date: 20170908
  Receipt Date: 20170908
  Transmission Date: 20171128
  Serious: Yes (Other)
  Sender: FDA-Public Use
  Company Number: None

PATIENT
  Age: 53 Year
  Sex: Female
  Weight: 72 kg

DRUGS (3)
  1. CELEXA [Concomitant]
     Active Substance: CITALOPRAM HYDROBROMIDE
  2. DULOXETINE. [Suspect]
     Active Substance: DULOXETINE
     Indication: FIBROMYALGIA
     Dosage: ?          QUANTITY:1 CAPSULE(S);?
     Dates: start: 20170620, end: 20170907
  3. PERCOCET [Concomitant]
     Active Substance: ACETAMINOPHEN\OXYCODONE HYDROCHLORIDE

REACTIONS (14)
  - Hyperhidrosis [None]
  - Nausea [None]
  - Anger [None]
  - Feeling abnormal [None]
  - Withdrawal syndrome [None]
  - Paraesthesia [None]
  - Headache [None]
  - Vertigo [None]
  - Heart rate increased [None]
  - Crying [None]
  - Pain [None]
  - Dizziness [None]
  - Mood altered [None]
  - Hot flush [None]

NARRATIVE: CASE EVENT DATE: 20170901
